FAERS Safety Report 26014405 (Version 1)
Quarter: 2025Q4

REPORT INFORMATION
  Report Type: Spontaneous
  Country: GB (occurrence: GB)
  Receive Date: 20251108
  Receipt Date: 20251108
  Transmission Date: 20260118
  Serious: Yes (Other)
  Sender: MSN LABORATORIES PRIVATE LIMITED
  Company Number: GB-MHRA-TPP20032820C9724756YC1761230304701

PATIENT

DRUGS (13)
  1. ATORVASTATIN [Suspect]
     Active Substance: ATORVASTATIN
     Indication: Ill-defined disorder
     Route: 065
     Dates: start: 20250927
  2. AQUAMAX [CETOSTEARYL ALCOHOL;PARAFFIN, LIQUID;PHENOXYETHANOL;POLYSORBA [Concomitant]
     Indication: Ill-defined disorder
     Dosage: ADULTS AND CHILDREN.  APPLY AS REQUIRED
     Route: 065
     Dates: start: 20240730, end: 20250930
  3. BECLOMETHASONE DIPROPIONATE [Concomitant]
     Active Substance: BECLOMETHASONE DIPROPIONATE
     Indication: Ill-defined disorder
     Dosage: TWO PUFFS TWICE DAILY TO EACH NOSTRIL
     Route: 065
     Dates: start: 20240730
  4. ESOMEPRAZOLE [Concomitant]
     Active Substance: ESOMEPRAZOLE
     Indication: Ill-defined disorder
     Dosage: TAKE ONE DAILY
     Route: 065
     Dates: start: 20240730
  5. GLICLAZIDE [Concomitant]
     Active Substance: GLICLAZIDE
     Indication: Ill-defined disorder
     Dosage: TAKE ONE WITH BREAKFAST
     Route: 065
     Dates: start: 20240730
  6. LEVOTHYROXINE [Concomitant]
     Active Substance: LEVOTHYROXINE
     Indication: Ill-defined disorder
     Dosage: TAKE 2 TABLETS ONE DAY AND 3 TABLETS THE NEXT DAY
     Route: 065
     Dates: start: 20240730
  7. METFORMIN [Concomitant]
     Active Substance: METFORMIN HYDROCHLORIDE
     Indication: Ill-defined disorder
     Dosage: TAKE TWO TABLETS TWICE DAILY
     Route: 065
     Dates: start: 20240730
  8. RAMIPRIL [Concomitant]
     Active Substance: RAMIPRIL
     Indication: Ill-defined disorder
     Dosage: TAKE ONE DAILY
     Route: 065
     Dates: start: 20240730
  9. HYDROXOCOBALAMIN [Concomitant]
     Active Substance: HYDROXOCOBALAMIN
     Indication: Ill-defined disorder
     Dosage: 1 MG  THREE TIMES WEEKLY FOR 2 WEEKS THEN 3 MNO...
     Route: 065
     Dates: start: 20240904
  10. ALGINIC ACID\ALUMINUM HYDROXIDE\MAGNESIUM TRISILICATE\SODIUM BICARBONA [Concomitant]
     Active Substance: ALGINIC ACID\ALUMINUM HYDROXIDE\MAGNESIUM TRISILICATE\SODIUM BICARBONATE
     Indication: Ill-defined disorder
     Dosage: 10ML-20ML AT NIGHT AS PHYSICAL BARRIER
     Route: 065
     Dates: start: 20241101
  11. NIACINAMIDE\PYRIDOXINE HYDROCHLORIDE\RIBOFLAVIN\THIAMINE HYDROCHLORIDE [Concomitant]
     Active Substance: NIACINAMIDE\PYRIDOXINE HYDROCHLORIDE\RIBOFLAVIN\THIAMINE HYDROCHLORIDE
     Indication: Ill-defined disorder
     Dosage: TAKE 1 , 3 TIMES/DAY
     Route: 065
     Dates: start: 20250113
  12. CETIRIZINE [Concomitant]
     Active Substance: CETIRIZINE HYDROCHLORIDE
     Indication: Ill-defined disorder
     Dosage: TAKE ONCE OR TWICE DAILY
     Route: 065
     Dates: start: 20250311
  13. DICLOFENAC DIETHYLAMINE [Concomitant]
     Active Substance: DICLOFENAC DIETHYLAMINE
     Indication: Ill-defined disorder
     Dosage: APPLY 3 - 4 TIMES/DAY
     Route: 065
     Dates: start: 20250311

REACTIONS (3)
  - Back pain [Recovering/Resolving]
  - Myalgia [Recovering/Resolving]
  - Neck pain [Recovering/Resolving]
